FAERS Safety Report 6607794-5 (Version None)
Quarter: 2010Q1

REPORT INFORMATION
  Report Type: 
  Country: None (occurrence: None)
  Receive Date: 20100225
  Receipt Date: 20100225
  Transmission Date: 20100710
  Serious: No
  Sender: FDA-Public Use
  Company Number: None

PATIENT
  Sex: Male
  Weight: 80 kg

DRUGS (1)
  1. DAILY MULTIPLE USP FOR MEN, NOW WITH LYCOPENE N/A CVS PHARMACY [Suspect]
     Dosage: 1 TABLET SID ORAL 047
     Route: 048
     Dates: start: 20080801, end: 20080930

REACTIONS (2)
  - ACCOMMODATION DISORDER [None]
  - VISUAL IMPAIRMENT [None]
